FAERS Safety Report 24458688 (Version 1)
Quarter: 2024Q4

REPORT INFORMATION
  Report Type: Spontaneous
  Country: US (occurrence: US)
  Receive Date: 20241018
  Receipt Date: 20241018
  Transmission Date: 20250115
  Serious: No
  Sender: DERMAVANT SCIENCES, INC.
  Company Number: US-Dermavant-001289

PATIENT
  Age: 22 Year
  Sex: Female

DRUGS (1)
  1. VTAMA [Suspect]
     Active Substance: TAPINAROF
     Indication: Psoriasis
     Dosage: AREA TREATED: THIGH, ABDOMEN
     Route: 065
     Dates: start: 20240910, end: 20240911

REACTIONS (1)
  - Headache [Recovered/Resolved]

NARRATIVE: CASE EVENT DATE: 20240910
